FAERS Safety Report 6271626-8 (Version None)
Quarter: 2009Q3

REPORT INFORMATION
  Report Type: 
  Country: None (occurrence: None)
  Receive Date: 20090717
  Receipt Date: 20090710
  Transmission Date: 20100115
  Serious: Yes (Death, Other)
  Sender: FDA-Public Use
  Company Number: CN-ELI_LILLY_AND_COMPANY-CN200907002156

PATIENT
  Age: 48 Year
  Sex: Female

DRUGS (3)
  1. GEMZAR [Suspect]
     Indication: LUNG ADENOCARCINOMA
     Dosage: 1.6 G, DAY 1 AND 8
  2. CISPLATIN [Concomitant]
     Indication: LUNG ADENOCARCINOMA
     Dosage: 30 MG, DAY 1 TO 4
  3. HEPARIN SODIUM [Concomitant]

REACTIONS (5)
  - ACUTE MYOCARDIAL INFARCTION [None]
  - CONVULSION [None]
  - MENORRHAGIA [None]
  - RESPIRATORY FAILURE [None]
  - VENTRICULAR EXTRASYSTOLES [None]
